FAERS Safety Report 5677439-X (Version None)
Quarter: 2008Q1

REPORT INFORMATION
  Report Type: 
  Country: None (occurrence: None)
  Receive Date: 20080324
  Receipt Date: 20080313
  Transmission Date: 20080703
  Serious: Yes (Hospitalization)
  Sender: FDA-Public Use
  Company Number: AU-PFIZER INC-2008014613

PATIENT
  Sex: Male

DRUGS (4)
  1. CHAMPIX [Suspect]
     Indication: NICOTINE DEPENDENCE
  2. EFFEXOR [Concomitant]
  3. EPILIM [Concomitant]
     Dosage: DAILY DOSE:1000MG
  4. BUSPAR [Concomitant]

REACTIONS (1)
  - INCOHERENT [None]
